FAERS Safety Report 4929591-9 (Version None)
Quarter: 2006Q1

REPORT INFORMATION
  Report Type: 
  Country: None (occurrence: None)
  Receive Date: 20060224
  Receipt Date: 20050311
  Transmission Date: 20060701
  Serious: Yes (Other)
  Sender: FDA-Public Use
  Company Number: 2005047880

PATIENT
  Age: 41 Year
  Sex: Male

DRUGS (8)
  1. BEXTRA [Suspect]
     Indication: ILL-DEFINED DISORDER
     Dates: start: 20031113, end: 20040701
  2. ZOLOFT [Concomitant]
  3. CENTRUM (MINERALS NOS, VITAMINS NOS) [Concomitant]
  4. ALBUTEROL [Concomitant]
  5. COMBIVENT [Concomitant]
  6. ZYRTEC [Concomitant]
  7. ADVAIR DISKUS 100/50 [Concomitant]
  8. NIASPAN [Concomitant]

REACTIONS (25)
  - ASTHMA [None]
  - BRONCHITIS [None]
  - BRONCHOSPASM [None]
  - CHILLS [None]
  - CORONARY ARTERY DISEASE [None]
  - DIASTOLIC DYSFUNCTION [None]
  - DISCOMFORT [None]
  - DYSPNOEA [None]
  - EJECTION FRACTION DECREASED [None]
  - GASTROOESOPHAGEAL REFLUX DISEASE [None]
  - HEADACHE [None]
  - HOT FLUSH [None]
  - MYOCARDIAL INFARCTION [None]
  - NAUSEA [None]
  - NECK PAIN [None]
  - PAIN [None]
  - PAIN IN EXTREMITY [None]
  - PULMONARY HYPERTENSION [None]
  - ROAD TRAFFIC ACCIDENT [None]
  - TESTICULAR PAIN [None]
  - THORACIC OUTLET SYNDROME [None]
  - THROMBOSIS [None]
  - VENTRICULAR HYPERTROPHY [None]
  - VIRAL INFECTION [None]
  - VOMITING [None]
